FAERS Safety Report 6385747-2 (Version None)
Quarter: 2009Q4

REPORT INFORMATION
  Report Type: 
  Country: None (occurrence: None)
  Receive Date: 20091002
  Receipt Date: 20081007
  Transmission Date: 20100525
  Serious: No
  Sender: FDA-Public Use
  Company Number: US-ASTRAZENECA-2008UW21881

PATIENT
  Age: 61 Year
  Sex: Female

DRUGS (1)
  1. ARIMIDEX [Suspect]
     Route: 048
     Dates: start: 20050101

REACTIONS (5)
  - DRY EYE [None]
  - DRY MOUTH [None]
  - DRY SKIN [None]
  - NEUROPATHY PERIPHERAL [None]
  - VULVOVAGINAL DRYNESS [None]
